FAERS Safety Report 22951705 (Version 3)
Quarter: 2023Q4

REPORT INFORMATION
  Report Type: Report from Study
  Country: KR (occurrence: KR)
  Receive Date: 20230918
  Receipt Date: 20231031
  Transmission Date: 20240109
  Serious: Yes (Other)
  Sender: FDA-Public Use
  Company Number: KR-002147023-NVSC2023KR180202

PATIENT
  Age: 62 Year
  Sex: Female
  Weight: 63 kg

DRUGS (11)
  1. ARCAPTA NEOHALER [Suspect]
     Active Substance: INDACATEROL MALEATE
     Indication: Asthma
     Dosage: UNK, QD (150/50/160UG)
     Dates: start: 20220906
  2. NEMEOL [Concomitant]
     Indication: Gastrointestinal disorder prophylaxis
     Dosage: 1 DOSAGE FORM, QD
     Route: 048
     Dates: start: 20220906, end: 20220910
  3. NEMEOL [Concomitant]
     Dosage: 1 DOSAGE FORM, QD
     Route: 048
     Dates: start: 20221229, end: 20230104
  4. THEOBROMINE [Concomitant]
     Active Substance: THEOBROMINE
     Indication: Asthma
     Dosage: 1 DOSAGE FORM, BID
     Route: 048
     Dates: start: 20220906
  5. METHYLPREDNISOLONE [Concomitant]
     Active Substance: METHYLPREDNISOLONE
     Indication: Asthma
     Dosage: 4 DOSAGE FORM, QD
     Route: 048
     Dates: start: 20220906, end: 20220910
  6. METHYLPREDNISOLONE [Concomitant]
     Active Substance: METHYLPREDNISOLONE
     Dosage: 4 DOSAGE FORM, QD
     Route: 048
     Dates: start: 20221229, end: 20230104
  7. ERDOSTEINE [Concomitant]
     Active Substance: ERDOSTEINE
     Indication: Asthma
     Dosage: 1 DOSAGE FORM, BID
     Route: 048
     Dates: start: 20220906, end: 20221117
  8. ERDOSTEINE [Concomitant]
     Active Substance: ERDOSTEINE
     Dosage: 1 DOSAGE FORM, BID
     Route: 048
     Dates: start: 20221229, end: 20230226
  9. SINGULAIR [Concomitant]
     Active Substance: MONTELUKAST SODIUM
     Indication: Asthma
     Dosage: 1 DOSAGE FORM, QD
     Route: 048
     Dates: start: 20220906
  10. RUPAFIN [Concomitant]
     Active Substance: RUPATADINE FUMARATE
     Indication: Asthma
     Dosage: 1 DOSAGE FORM, QD
     Route: 048
     Dates: start: 20221004
  11. ALBUTEROL SULFATE [Concomitant]
     Active Substance: ALBUTEROL SULFATE
     Indication: Asthma
     Dosage: 1 DOSAGE FORM, PRN (PUFF)
     Dates: start: 20221004

REACTIONS (2)
  - Pneumonia [Recovered/Resolved]
  - COVID-19 [Recovered/Resolved]

NARRATIVE: CASE EVENT DATE: 20221010
